FAERS Safety Report 12326179 (Version 4)
Quarter: 2016Q2

REPORT INFORMATION
  Report Type: Spontaneous
  Country: US (occurrence: US)
  Receive Date: 20160503
  Receipt Date: 20160531
  Transmission Date: 20160815
  Serious: Yes (Other)
  Sender: FDA-Public Use
  Company Number: US-AUROBINDO-AUR-APL-2016-04558

PATIENT

DRUGS (1)
  1. FLUCONAZOLE TABLETS 150 MG [Suspect]
     Active Substance: FLUCONAZOLE
     Indication: INFECTION
     Dosage: 150 MG, EVERY WEEK
     Route: 065
     Dates: start: 20160322, end: 20160412

REACTIONS (4)
  - Muscle spasms [Recovering/Resolving]
  - Epistaxis [Recovering/Resolving]
  - Tinnitus [Recovering/Resolving]
  - Headache [Recovering/Resolving]

NARRATIVE: CASE EVENT DATE: 20160325
